FAERS Safety Report 6427894-2 (Version None)
Quarter: 2009Q4

REPORT INFORMATION
  Report Type: 
  Country: None (occurrence: None)
  Receive Date: 20091105
  Receipt Date: 20091102
  Transmission Date: 20100525
  Serious: Yes (Life-Threatening)
  Sender: FDA-Public Use
  Company Number: NZ-ASTRAZENECA-2009SE23645

PATIENT
  Age: 56 Year
  Sex: Male

DRUGS (5)
  1. LIGNOCAINE [Suspect]
     Route: 058
     Dates: start: 20040720, end: 20040720
  2. SIMVASTATIN [Concomitant]
     Route: 048
  3. OMEPRAZOLE [Concomitant]
     Route: 048
  4. FELODIPINE [Concomitant]
     Route: 048
  5. FLUCLOXACILLIN [Concomitant]
     Route: 042
     Dates: start: 20040717, end: 20040720

REACTIONS (1)
  - ANAPHYLACTIC REACTION [None]
